FAERS Safety Report 9225012 (Version 2)
Quarter: 2013Q2

REPORT INFORMATION
  Report Type: Spontaneous
  Country: JP (occurrence: JP)
  Receive Date: 20130411
  Receipt Date: 20130418
  Transmission Date: 20140414
  Serious: No
  Sender: FDA-Public Use
  Company Number: JP-ASTRAZENECA-2013SE21958

PATIENT
  Age: 90 Year
  Sex: Female

DRUGS (1)
  1. XYLOCAINE JELLY [Suspect]
     Dosage: DOSE UNKNOWN
     Route: 065

REACTIONS (1)
  - Blood pressure decreased [Recovered/Resolved]
